FAERS Safety Report 5022162-8 (Version None)
Quarter: 2006Q2

REPORT INFORMATION
  Report Type: 
  Country: None (occurrence: None)
  Receive Date: 20060605
  Receipt Date: 20060523
  Transmission Date: 20061013
  Serious: Yes (Other)
  Sender: FDA-Public Use
  Company Number: 2006067878

PATIENT
  Age: 41 Year
  Sex: Female
  Weight: 183 kg

DRUGS (11)
  1. ZYVOX [Suspect]
     Indication: STAPHYLOCOCCAL INFECTION
     Dosage: 1200 MG (600 MG, 2 IN 1 D), ORAL
     Route: 048
     Dates: start: 20060419, end: 20060427
  2. WARFARIN (WARFARN) [Suspect]
     Indication: PULMONARY EMBOLISM
     Dosage: ORAL
     Route: 048
     Dates: start: 20060417
  3. GLICLAZIDE (GLICLAZIDE) [Concomitant]
  4. METFORMIN [Concomitant]
  5. CANDESARTAN (CANDESARTAN) [Concomitant]
  6. DILTIAZEM [Concomitant]
  7. NITROGLYCERIN [Concomitant]
  8. ATORVASTATIN CALCIUM [Concomitant]
  9. LANSOPRAZOLE [Concomitant]
  10. BECLOMETHASONE (BECLOMETASONE) [Concomitant]
  11. SALBUTAMOL (SALBUTAMOL) [Concomitant]

REACTIONS (10)
  - CHOLECYSTITIS [None]
  - DRUG INTERACTION [None]
  - DRUG INTERACTION POTENTIATION [None]
  - INTERNATIONAL NORMALISED RATIO INCREASED [None]
  - LABORATORY TEST ABNORMAL [None]
  - LIVER FUNCTION TEST ABNORMAL [None]
  - PANCREATITIS [None]
  - PULMONARY EMBOLISM [None]
  - RESPIRATORY FAILURE [None]
  - SEPSIS [None]
